FAERS Safety Report 4406728-1 (Version None)
Quarter: 2004Q2

REPORT INFORMATION
  Report Type: 
  Country: None (occurrence: None)
  Receive Date: 20040618
  Receipt Date: 20040423
  Transmission Date: 20050107
  Serious: No
  Sender: FDA-Public Use
  Company Number: US-JNJFOC-20040405901

PATIENT
  Age: 44 Year
  Sex: Female

DRUGS (1)
  1. ORTHO EVRA [Suspect]
     Indication: CONTRACEPTION

REACTIONS (4)
  - BACK PAIN [None]
  - BREAST TENDERNESS [None]
  - MYALGIA [None]
  - NAUSEA [None]
